FAERS Safety Report 9069274 (Version 2)
Quarter: 2013Q2

REPORT INFORMATION
  Report Type: Spontaneous
  Country: US (occurrence: US)
  Receive Date: 20130215
  Receipt Date: 20130423
  Transmission Date: 20140414
  Serious: Yes (Hospitalization, Other)
  Sender: FDA-Public Use
  Company Number: US-JNJFOC-20130202867

PATIENT
  Age: 63 Year
  Sex: Male
  Weight: 108.86 kg

DRUGS (14)
  1. XARELTO [Suspect]
     Indication: ANTICOAGULANT THERAPY
     Route: 048
     Dates: end: 20130203
  2. ASPIRIN [Suspect]
     Indication: PLATELET AGGREGATION INHIBITION
     Route: 048
     Dates: end: 20130203
  3. WARFARIN [Suspect]
     Indication: ANTICOAGULANT THERAPY
     Route: 048
     Dates: end: 20130203
  4. ZYPREXA [Suspect]
     Indication: DELIRIUM
     Route: 065
  5. ZYPREXA [Suspect]
     Indication: AGITATION
     Route: 065
  6. PROPRANOLOL [Concomitant]
     Indication: ESSENTIAL TREMOR
     Route: 065
  7. KEPPRA [Concomitant]
     Indication: CONVULSION
     Route: 065
  8. HALDOL [Concomitant]
     Indication: AGITATION
     Route: 065
  9. HALDOL [Concomitant]
     Indication: DELIRIUM
     Route: 065
  10. SEROQUEL [Concomitant]
     Indication: AGITATION
     Route: 065
  11. SEROQUEL [Concomitant]
     Indication: DELIRIUM
     Route: 065
  12. LANTUS [Concomitant]
     Indication: DIABETES MELLITUS
     Route: 065
  13. INSULIN ASPART [Concomitant]
     Indication: DIABETES MELLITUS
     Route: 065
  14. HEPARIN [Concomitant]
     Dosage: 5000UNITS/ML
     Route: 058
     Dates: start: 20130220, end: 20130221

REACTIONS (7)
  - Cerebral haemorrhage [Recovering/Resolving]
  - Road traffic accident [Unknown]
  - Hypotension [Recovering/Resolving]
  - Cerebral amyloid angiopathy [Unknown]
  - Renal failure acute [Unknown]
  - Cognitive disorder [Recovered/Resolved]
  - Inappropriate schedule of drug administration [Unknown]
